FAERS Safety Report 9649212 (Version 1)
Quarter: 2013Q4

REPORT INFORMATION
  Report Type: Spontaneous
  Country: US (occurrence: US)
  Receive Date: 20131028
  Receipt Date: 20131028
  Transmission Date: 20140711
  Serious: No
  Sender: FDA-Public Use
  Company Number: US-PFIZER INC-2013305061

PATIENT
  Age: 59 Year
  Sex: Female
  Weight: 88.9 kg

DRUGS (12)
  1. PREMARIN [Suspect]
     Indication: VULVOVAGINAL DRYNESS
     Dosage: UNK, THREE TIMES A WEEK
     Route: 067
     Dates: start: 201303, end: 2013
  2. PREMARIN [Suspect]
     Dosage: UNK, 2X/WEEK
     Route: 067
     Dates: start: 2013
  3. PREMARIN [Suspect]
     Dosage: UNK
     Route: 067
     Dates: end: 201310
  4. LAMICTAL [Concomitant]
     Dosage: UNK
  5. TOPAMAX [Concomitant]
     Dosage: UNK
  6. LISINOPRIL [Concomitant]
     Dosage: UNK
  7. GLUCOTROL [Concomitant]
     Dosage: UNK
  8. METFORMIN [Concomitant]
     Dosage: UNK
  9. CYMBALTA [Concomitant]
     Dosage: UNK
  10. ZANTAC [Concomitant]
     Dosage: UNK
  11. SIMVASTATIN [Concomitant]
     Dosage: UNK
  12. GABAPENTIN [Concomitant]
     Dosage: UNK

REACTIONS (3)
  - Application site pain [Unknown]
  - Hypersensitivity [Unknown]
  - Urticaria [Unknown]
